FAERS Safety Report 5799436-6 (Version None)
Quarter: 2008Q3

REPORT INFORMATION
  Report Type: 
  Country: None (occurrence: None)
  Receive Date: 20080702
  Receipt Date: 20080702
  Transmission Date: 20090109
  Serious: Yes (Other)
  Sender: FDA-Public Use
  Company Number: None

PATIENT
  Sex: Female
  Weight: 26.4 kg

DRUGS (1)
  1. GAMUNEX [Suspect]
     Indication: IMMUNOGLOBULINS DECREASED
     Dosage: 10 GRAMS EVERY 7 WEEKS IV DRIP
     Route: 041
     Dates: start: 20080630, end: 20080630

REACTIONS (2)
  - URTICARIA [None]
  - WHEEZING [None]
